FAERS Safety Report 13356090 (Version 3)
Quarter: 2020Q2

REPORT INFORMATION
  Report Type: Spontaneous
  Country: JP (occurrence: JP)
  Receive Date: 20170321
  Receipt Date: 20200402
  Transmission Date: 20200713
  Serious: Yes (Disabling, Other)
  Sender: FDA-Public Use
  Company Number: JP-JNJFOC-20161223281

PATIENT
  Age: 66 Year
  Sex: Female
  Weight: 69.8 kg

DRUGS (5)
  1. LANDEL [Suspect]
     Active Substance: UNSPECIFIED INGREDIENT
     Indication: PRODUCT USED FOR UNKNOWN INDICATION
     Dosage: UNK
     Route: 048
     Dates: end: 2015
  2. LIPITOR [Suspect]
     Active Substance: ATORVASTATIN CALCIUM
     Indication: DYSLIPIDAEMIA
     Dosage: DAILY DOSE 10 MG
     Route: 048
     Dates: start: 20150422, end: 20160412
  3. RIVAROXABAN [Suspect]
     Active Substance: RIVAROXABAN
     Indication: ATRIAL FIBRILLATION
     Dosage: 15 MG, QD
     Route: 048
     Dates: start: 20140526, end: 20160412
  4. CRESTOR [Concomitant]
     Active Substance: ROSUVASTATIN CALCIUM
     Dosage: UNK
     Dates: end: 2015
  5. LIPITOR [Suspect]
     Active Substance: ATORVASTATIN CALCIUM
     Dosage: DAILY DOSE 5 MG
     Route: 048
     Dates: start: 20160413

REACTIONS (2)
  - Spinal cord injury thoracic [Unknown]
  - Spinal cord haematoma [Recovered/Resolved with Sequelae]

NARRATIVE: CASE EVENT DATE: 20160413
